FAERS Safety Report 5931328-1 (Version None)
Quarter: 2008Q4

REPORT INFORMATION
  Report Type: 
  Country: None (occurrence: None)
  Receive Date: 20081027
  Receipt Date: 20081015
  Transmission Date: 20090506
  Serious: Yes (Other)
  Sender: FDA-Public Use
  Company Number: JP-MERCK-0810USA03625

PATIENT
  Age: 79 Year
  Sex: Male

DRUGS (4)
  1. PEPCID RPD [Suspect]
     Route: 048
     Dates: end: 20081016
  2. ITOROL [Concomitant]
     Route: 048
  3. ASPIRIN [Concomitant]
     Route: 048
  4. PLAVIX [Concomitant]
     Route: 048

REACTIONS (1)
  - RENAL FAILURE CHRONIC [None]
